FAERS Safety Report 16949386 (Version 2)
Quarter: 2020Q1

REPORT INFORMATION
  Report Type: Report from Study
  Country: CA (occurrence: CA)
  Receive Date: 20191023
  Receipt Date: 20200128
  Transmission Date: 20200409
  Serious: Yes (Hospitalization, Other)
  Sender: FDA-Public Use
  Company Number: CA-TAKEDA-2018TUS032682

PATIENT
  Age: 31 Year
  Sex: Male

DRUGS (4)
  1. VEDOLIZUMAB [Suspect]
     Active Substance: VEDOLIZUMAB
     Dosage: 300 MILLIGRAM
     Route: 042
  2. VEDOLIZUMAB [Suspect]
     Active Substance: VEDOLIZUMAB
     Indication: CROHN^S DISEASE
     Dosage: 300 MILLIGRAM
     Route: 042
     Dates: start: 20180720
  3. VEDOLIZUMAB [Suspect]
     Active Substance: VEDOLIZUMAB
     Dosage: 300 MILLIGRAM, Q4WEEKS
     Route: 042
     Dates: start: 20190528
  4. VEDOLIZUMAB [Suspect]
     Active Substance: VEDOLIZUMAB
     Dosage: 300 MILLIGRAM, Q4WEEKS
     Route: 042

REACTIONS (11)
  - Crohn^s disease [Not Recovered/Not Resolved]
  - Frequent bowel movements [Unknown]
  - Anaemia [Unknown]
  - Enteritis infectious [Unknown]
  - Small intestinal obstruction [Recovered/Resolved]
  - Fatigue [Recovered/Resolved]
  - Abdominal pain [Recovering/Resolving]
  - Off label use [Unknown]
  - Gastrointestinal stoma complication [Unknown]
  - Diarrhoea [Recovering/Resolving]
  - Anal stenosis [Not Recovered/Not Resolved]

NARRATIVE: CASE EVENT DATE: 20181015
